FAERS Safety Report 7243658-4 (Version None)
Quarter: 2011Q1

REPORT INFORMATION
  Report Type: 
  Country: None (occurrence: None)
  Receive Date: 20110118
  Receipt Date: 20110105
  Transmission Date: 20110831
  Serious: Yes (Hospitalization)
  Sender: FDA-Public Use
  Company Number: LEO-2010-01159

PATIENT
  Sex: Female
  Weight: 54 kg

DRUGS (2)
  1. WARFARIN (WARFARIN) (TABLETS) [Concomitant]
  2. INNOHEP [Suspect]
     Indication: THROMBOSIS PROPHYLAXIS
     Dosage: 10000 IU (1 D),SUBCUTANEOUS
     Route: 058

REACTIONS (4)
  - DRUG EXPOSURE DURING PREGNANCY [None]
  - PORTAL VEIN THROMBOSIS [None]
  - LYMPH NODE TUBERCULOSIS [None]
  - PREMATURE LABOUR [None]
